APPROVED DRUG PRODUCT: NYMALIZE
Active Ingredient: NIMODIPINE
Strength: 3MG/ML **Federal Register determination that product was not discontinued or withdrawn for safety or effectiveness reasons**
Dosage Form/Route: SOLUTION;ORAL
Application: N203340 | Product #001
Applicant: AZURITY PHARMACEUTICALS INC
Approved: May 10, 2013 | RLD: Yes | RS: No | Type: DISCN